FAERS Safety Report 20892927 (Version 1)
Quarter: 2022Q2

REPORT INFORMATION
  Report Type: Spontaneous
  Country: US (occurrence: US)
  Receive Date: 20220531
  Receipt Date: 20220531
  Transmission Date: 20220721
  Serious: Yes (Death, Hospitalization, Other)
  Sender: FDA-Public Use
  Company Number: US-AMGEN-USASP2022087632

PATIENT
  Age: 87 Year
  Sex: Female

DRUGS (1)
  1. RITUXIMAB [Suspect]
     Active Substance: RITUXIMAB
     Indication: Thyroid B-cell lymphoma
     Dosage: UNK UNK, QWK
     Route: 065

REACTIONS (2)
  - Respiratory disorder [Fatal]
  - General physical health deterioration [Unknown]
